FAERS Safety Report 12879445 (Version 4)
Quarter: 2017Q3

REPORT INFORMATION
  Report Type: Report from Study
  Country: CA (occurrence: CA)
  Receive Date: 20161025
  Receipt Date: 20170816
  Transmission Date: 20171127
  Serious: Yes (Hospitalization, Other)
  Sender: FDA-Public Use
  Company Number: CA-AMGEN-CANSL2016145155

PATIENT
  Age: 80 Year
  Sex: Female
  Weight: 53 kg

DRUGS (8)
  1. PROLIA [Suspect]
     Active Substance: DENOSUMAB
     Indication: OSTEOPOROSIS POSTMENOPAUSAL
     Dosage: UNK, Q6MO
     Route: 065
     Dates: start: 20110816
  2. AAS [Concomitant]
     Active Substance: ASPIRIN
  3. PANTOPRAZOLE [Concomitant]
     Active Substance: PANTOPRAZOLE
  4. LYRICA [Suspect]
     Active Substance: PREGABALIN
     Indication: PAIN
     Dosage: 25 MG, QD
     Route: 048
     Dates: start: 20160301, end: 20161014
  5. TOVIAZ [Suspect]
     Active Substance: FESOTERODINE FUMARATE
     Indication: HYPERTONIC BLADDER
     Dosage: 4 MG, QH
     Route: 048
     Dates: start: 20160121
  6. METOPROLOL. [Concomitant]
     Active Substance: METOPROLOL
  7. PROLIA [Suspect]
     Active Substance: DENOSUMAB
     Indication: MENOPAUSAL SYMPTOMS
  8. ATORVASTATIN [Concomitant]
     Active Substance: ATORVASTATIN

REACTIONS (5)
  - Neurological symptom [Unknown]
  - Confusional state [Recovered/Resolved]
  - Fall [Unknown]
  - Amnesia [Recovered/Resolved]
  - Loss of consciousness [Recovered/Resolved]

NARRATIVE: CASE EVENT DATE: 2013
